FAERS Safety Report 5615878-3 (Version None)
Quarter: 2008Q1

REPORT INFORMATION
  Report Type: 
  Country: None (occurrence: None)
  Receive Date: 20080206
  Receipt Date: 20080125
  Transmission Date: 20080703
  Serious: Yes (Hospitalization)
  Sender: FDA-Public Use
  Company Number: US-SANOFI-SYNTHELABO-A03200705445

PATIENT
  Sex: Female

DRUGS (16)
  1. LEVOXYL [Concomitant]
     Indication: DRUG USE FOR UNKNOWN INDICATION
     Route: 048
  2. PROTONIX [Concomitant]
     Indication: DRUG USE FOR UNKNOWN INDICATION
     Route: 048
  3. PROVIGIL [Concomitant]
     Indication: DRUG USE FOR UNKNOWN INDICATION
     Route: 048
     Dates: end: 20070601
  4. LIPITOR [Concomitant]
     Indication: DRUG USE FOR UNKNOWN INDICATION
     Route: 048
  5. ROXICET [Interacting]
     Indication: DRUG USE FOR UNKNOWN INDICATION
     Dosage: 325/5 MG - 2 TAB EVERY 6 HOURS
     Route: 048
     Dates: end: 20070601
  6. SKELAXIN [Interacting]
     Indication: DRUG USE FOR UNKNOWN INDICATION
     Route: 048
     Dates: end: 20070601
  7. LYRICA [Interacting]
     Indication: DRUG USE FOR UNKNOWN INDICATION
     Dosage: UNK
     Route: 065
     Dates: end: 20070601
  8. ABILIFY [Interacting]
     Indication: DRUG USE FOR UNKNOWN INDICATION
     Route: 048
  9. TYLENOL W/ CODEINE [Interacting]
     Indication: DRUG USE FOR UNKNOWN INDICATION
     Dosage: 1 TAB FOUR TIMES A DAY
     Route: 048
     Dates: end: 20070601
  10. TEMAZEPAM [Interacting]
     Indication: DRUG USE FOR UNKNOWN INDICATION
     Dosage: UNK
     Route: 065
     Dates: end: 20070601
  11. ROZEREM [Interacting]
     Indication: DRUG USE FOR UNKNOWN INDICATION
     Dosage: UNK
     Route: 065
     Dates: end: 20070601
  12. LITHIUM CARBONATE [Concomitant]
     Indication: DRUG USE FOR UNKNOWN INDICATION
     Route: 048
  13. TRAZODONE HCL [Interacting]
     Indication: SLEEP DISORDER
     Dosage: 2 TAB HS
     Route: 048
     Dates: end: 20070611
  14. AMBIEN CR [Suspect]
     Indication: INSOMNIA
     Route: 048
     Dates: start: 20070201, end: 20070611
  15. LAMICTAL [Interacting]
     Indication: INSOMNIA
     Route: 048
  16. ZANAFLEX [Concomitant]
     Indication: SCIATICA
     Dosage: UNK
     Route: 048

REACTIONS (18)
  - ACIDOSIS [None]
  - ALTERED STATE OF CONSCIOUSNESS [None]
  - AMNESIA [None]
  - ATELECTASIS [None]
  - BRADYCARDIA [None]
  - DIPLOPIA [None]
  - DRUG INTERACTION [None]
  - EATING DISORDER [None]
  - FATIGUE [None]
  - HYPOKALAEMIA [None]
  - HYPOXIA [None]
  - NAUSEA [None]
  - PNEUMONIA ASPIRATION [None]
  - RESPIRATORY DEPRESSION [None]
  - SOMNAMBULISM [None]
  - SYNCOPE [None]
  - VERTIGO [None]
  - VOMITING [None]
